FAERS Safety Report 12383713 (Version 2)
Quarter: 2016Q2

REPORT INFORMATION
  Report Type: Spontaneous
  Country: PL (occurrence: PL)
  Receive Date: 20160519
  Receipt Date: 20160622
  Transmission Date: 20160815
  Serious: Yes (Hospitalization)
  Sender: FDA-Public Use
  Company Number: PL-ROCHE-1758475

PATIENT
  Age: 62 Year
  Sex: Male

DRUGS (1)
  1. XOLAIR [Suspect]
     Active Substance: OMALIZUMAB
     Indication: ASTHMA
     Route: 058
     Dates: start: 20160406

REACTIONS (7)
  - Renal failure [Recovering/Resolving]
  - Asthma [Unknown]
  - Blood urea increased [Unknown]
  - Generalised oedema [Unknown]
  - Blood creatinine increased [Unknown]
  - Urinary retention [Recovering/Resolving]
  - Prostatomegaly [Unknown]

NARRATIVE: CASE EVENT DATE: 20160504
